FAERS Safety Report 12115671 (Version 2)
Quarter: 2016Q2

REPORT INFORMATION
  Report Type: Spontaneous
  Country: US (occurrence: US)
  Receive Date: 20160225
  Receipt Date: 20160421
  Transmission Date: 20160815
  Serious: Yes (Hospitalization, Other)
  Sender: FDA-Public Use
  Company Number: US-GLAXOSMITHKLINE-US2016026490

PATIENT
  Sex: Female
  Weight: 60.32 kg

DRUGS (12)
  1. IMURAN [Suspect]
     Active Substance: AZATHIOPRINE
  2. BENLYSTA [Suspect]
     Active Substance: BELIMUMAB
     Indication: SYSTEMIC LUPUS ERYTHEMATOSUS
     Dosage: UNK
     Dates: end: 201506
  3. MELOXICAM. [Suspect]
     Active Substance: MELOXICAM
  4. DOXEPIN [Concomitant]
     Active Substance: DOXEPIN
  5. AVELOX [Suspect]
     Active Substance: MOXIFLOXACIN HYDROCHLORIDE
  6. KEPPRA [Suspect]
     Active Substance: LEVETIRACETAM
  7. LAMICTAL [Suspect]
     Active Substance: LAMOTRIGINE
  8. CELLCEPT [Suspect]
     Active Substance: MYCOPHENOLATE MOFETIL\MYCOPHENOLATE MOFETIL HYDROCHLORIDE
     Indication: PRODUCT USED FOR UNKNOWN INDICATION
     Dosage: 1000 MG, BID
     Route: 048
     Dates: start: 201311, end: 201602
  9. DEPAKOTE [Concomitant]
     Active Substance: DIVALPROEX SODIUM
  10. BENLYSTA [Suspect]
     Active Substance: BELIMUMAB
     Indication: ARTHRITIS
     Dosage: 520 MG, CYC (EVERY 4 WEEKS)
     Route: 042
     Dates: end: 201601
  11. AUGMENTIN [Suspect]
     Active Substance: AMOXICILLIN\CLAVULANATE POTASSIUM
  12. LYSINE [Concomitant]
     Active Substance: LYSINE

REACTIONS (34)
  - Psychogenic seizure [Unknown]
  - Urinary incontinence [Unknown]
  - Lymphadenopathy [Unknown]
  - Pain of skin [Unknown]
  - Skin ulcer [Unknown]
  - Serum sickness [Unknown]
  - Dyspnoea [Unknown]
  - Seizure [Unknown]
  - Blood potassium decreased [Unknown]
  - Arthralgia [Unknown]
  - Stomatitis [Unknown]
  - Laboratory test abnormal [Unknown]
  - Nasal ulcer [Unknown]
  - Enteritis [Unknown]
  - Functional gastrointestinal disorder [Unknown]
  - Pruritus [Unknown]
  - Loss of consciousness [Unknown]
  - Anaphylactic reaction [Unknown]
  - Somnolence [Unknown]
  - Anal incontinence [Unknown]
  - Drug hypersensitivity [Unknown]
  - Systemic lupus erythematosus [Unknown]
  - Urticaria chronic [Unknown]
  - Photosensitivity reaction [Unknown]
  - Sinusitis [Unknown]
  - Tachycardia [Unknown]
  - Oral mucosal blistering [Unknown]
  - Post-traumatic stress disorder [Unknown]
  - Disorientation [Unknown]
  - Blood potassium abnormal [Unknown]
  - Urticaria [Unknown]
  - Back pain [Unknown]
  - Diarrhoea [Unknown]
  - Irritable bowel syndrome [Unknown]
